FAERS Safety Report 17102173 (Version 1)
Quarter: 2019Q4

REPORT INFORMATION
  Report Type: Report from Study
  Country: GB (occurrence: GB)
  Receive Date: 20191202
  Receipt Date: 20191202
  Transmission Date: 20200122
  Serious: Yes (Other)
  Sender: FDA-Public Use
  Company Number: GB-JNJFOC-20191134626

PATIENT
  Sex: Female

DRUGS (2)
  1. USTEKINUMAB [Suspect]
     Active Substance: USTEKINUMAB
     Indication: CROHN^S DISEASE
     Route: 042
     Dates: start: 2019
  2. OCTASA [Concomitant]
     Active Substance: MESALAMINE

REACTIONS (5)
  - Erythema [Unknown]
  - Myocardial infarction [Unknown]
  - Panic attack [Unknown]
  - Psoriasis [Unknown]
  - Hypertension [Unknown]

NARRATIVE: CASE EVENT DATE: 2019
